FAERS Safety Report 10027594 (Version 2)
Quarter: 2014Q1

REPORT INFORMATION
  Report Type: Spontaneous
  Country: US (occurrence: US)
  Receive Date: 20140321
  Receipt Date: 20140331
  Transmission Date: 20141002
  Serious: No
  Sender: FDA-Public Use
  Company Number: US-PFIZER INC-2014079739

PATIENT
  Sex: Male

DRUGS (1)
  1. FLECTOR [Suspect]
     Dosage: 1 DF,  EVERY TWO DAYS
     Route: 062
     Dates: start: 20130310

REACTIONS (2)
  - Somnolence [Unknown]
  - Abdominal pain upper [Unknown]
